FAERS Safety Report 20838039 (Version 1)
Quarter: 2022Q2

REPORT INFORMATION
  Report Type: Spontaneous
  Country: ET (occurrence: ET)
  Receive Date: 20220517
  Receipt Date: 20220517
  Transmission Date: 20220721
  Serious: Yes (Other)
  Sender: FDA-Public Use
  Company Number: ET-ORGANON-O2205ETH000959

PATIENT
  Age: 24 Year
  Sex: Female

DRUGS (5)
  1. NEXPLANON [Interacting]
     Active Substance: ETONOGESTREL
     Indication: Contraception
     Dosage: 1 IMPLANT OF 68 MG IN LEFT UPPER ARM
     Route: 059
     Dates: start: 201809
  2. RIFAMPIN [Interacting]
     Active Substance: RIFAMPIN
     Indication: Lymph node tuberculosis
     Dosage: UNK, ONCE DAILY FOR TWO MONTHS
     Dates: start: 202007
  3. ISONIAZID [Concomitant]
     Active Substance: ISONIAZID
     Indication: Lymph node tuberculosis
     Dosage: UNK, ONCE DAILY FOR TWO MONTHS
     Dates: start: 202007
  4. PYRAZINAMIDE [Concomitant]
     Active Substance: PYRAZINAMIDE
     Indication: Lymph node tuberculosis
     Dosage: UNK, ONCE DAILY FOR TWO MONTHS
     Dates: start: 202007
  5. ETHAMBUTOL [Concomitant]
     Active Substance: ETHAMBUTOL HYDROCHLORIDE
     Indication: Lymph node tuberculosis
     Dosage: UNK, ONCE DAILY FOR TWO MONTHS
     Dates: start: 202007

REACTIONS (4)
  - Pregnancy with implant contraceptive [Unknown]
  - Unintended pregnancy [Unknown]
  - Hypomenorrhoea [Unknown]
  - Drug interaction [Unknown]

NARRATIVE: CASE EVENT DATE: 20190101
